FAERS Safety Report 6765230-2 (Version None)
Quarter: 2010Q2

REPORT INFORMATION
  Report Type: 
  Country: None (occurrence: None)
  Receive Date: 20100610
  Receipt Date: 20100610
  Transmission Date: 20101027
  Serious: Yes (Hospitalization)
  Sender: FDA-Public Use
  Company Number: None

PATIENT
  Age: 55 Year
  Sex: Male
  Weight: 82.5 kg

DRUGS (14)
  1. SEROQUEL [Suspect]
     Indication: SCHIZOPHRENIA
     Dosage: 100-400MG PO QHS
     Route: 048
     Dates: start: 20070830, end: 20100416
  2. ALBUTEROL/LPRATOP BR [Concomitant]
  3. ALBUTEROL CFC-F [Concomitant]
  4. BUPROPION HCL [Concomitant]
  5. DIAZEPAM [Concomitant]
  6. DIVALPROEX EXTENDED-RELEASE [Concomitant]
  7. DOCUSATE NA [Concomitant]
  8. IBP [Concomitant]
  9. NICOTINE [Concomitant]
  10. OMEPRAZOLE [Concomitant]
  11. PROPRANOLOL [Concomitant]
  12. SIMVASTATIN [Concomitant]
  13. TERAZOSIN HCL [Concomitant]
  14. TRAMADOL HCL [Concomitant]

REACTIONS (4)
  - AGITATION [None]
  - DRUG SCREEN POSITIVE [None]
  - MEDICATION ERROR [None]
  - PAIN IN EXTREMITY [None]
